FAERS Safety Report 4345269-7 (Version None)
Quarter: 2004Q2

REPORT INFORMATION
  Report Type: 
  Country: None (occurrence: None)
  Receive Date: 20040423
  Receipt Date: 20040413
  Transmission Date: 20050107
  Serious: Yes (Hospitalization)
  Sender: FDA-Public Use
  Company Number: PHNR2004AU00901

PATIENT
  Age: 75 Year
  Sex: Female

DRUGS (7)
  1. SLOW-K [Suspect]
     Dosage: 3.0 DAILY (UNITS NOT SPECIFIED)
     Route: 048
     Dates: end: 20021104
  2. LISINOPRIL [Suspect]
     Indication: ESSENTIAL HYPERTENSION
     Dosage: 10 MG DAILY
     Route: 048
     Dates: end: 20021104
  3. SODIUM BICARBONATE [Suspect]
     Indication: CARDIAC FAILURE CONGESTIVE
     Dosage: 2.5 G DAILY
     Route: 048
     Dates: end: 20021104
  4. ASTRIX [Concomitant]
     Indication: MYOCARDIAL ISCHAEMIA
     Dosage: 100 MG DAILY
  5. CORDARONE X ^SANOFI-SYNTHELABO^ [Concomitant]
     Dosage: 200 MG DAILY
  6. SOMAC [Concomitant]
     Indication: OESOPHAGEAL DISORDER
     Dosage: 80 MG DAILY
  7. MAXOLON [Concomitant]
     Indication: NAUSEA
     Dosage: 30 MG DAILY

REACTIONS (4)
  - HYPERKALAEMIA [None]
  - HYPERNATRAEMIA [None]
  - NAUSEA [None]
  - VOMITING [None]
